FAERS Safety Report 6931127-8 (Version None)
Quarter: 2010Q3

REPORT INFORMATION
  Report Type: 
  Country: None (occurrence: None)
  Receive Date: 20100818
  Receipt Date: 20100809
  Transmission Date: 20110219
  Serious: Yes (Other)
  Sender: FDA-Public Use
  Company Number: US-AMGEN-KDL425737

PATIENT
  Sex: Female
  Weight: 85.4 kg

DRUGS (20)
  1. ENBREL [Suspect]
     Indication: PRODUCT USED FOR UNKNOWN INDICATION
     Route: 058
     Dates: start: 20100707
  2. METHYLPHENIDATE [Concomitant]
     Route: 048
  3. LUNESTA [Concomitant]
     Route: 048
  4. MELATONIN [Concomitant]
     Route: 048
  5. CYCLOBENZAPRINE [Concomitant]
     Route: 048
  6. TRAMADOL [Concomitant]
  7. GLUCOSAMINE W/CHONDROITIN SULFATES [Concomitant]
     Route: 048
  8. ASCORBIC ACID [Concomitant]
     Route: 048
  9. ALBUTEROL SULFATE [Concomitant]
     Route: 055
  10. ACETAMINOPHEN [Concomitant]
     Route: 048
  11. ESTRIOL [Concomitant]
     Route: 061
  12. CALTRATE PLUS [Concomitant]
  13. ADVAIR DISKUS 100/50 [Concomitant]
     Route: 055
  14. METHOTREXATE [Concomitant]
     Route: 048
  15. FOLIC ACID [Concomitant]
     Route: 048
  16. PREDNISONE [Concomitant]
     Route: 048
  17. EPINEPHRINE [Concomitant]
  18. ACETAMINOPHEN AND HYDROCODONE BITARTRATE [Concomitant]
  19. RANITIDINE [Concomitant]
     Route: 048
  20. UNSPECIFIED HORMONE REPLACEMENT THERAPY AGENT [Concomitant]
     Route: 061

REACTIONS (4)
  - DYSPNOEA [None]
  - LATEX ALLERGY [None]
  - PARAESTHESIA ORAL [None]
  - THROAT IRRITATION [None]
